FAERS Safety Report 5009413-0 (Version None)
Quarter: 2006Q2

REPORT INFORMATION
  Report Type: 
  Country: None (occurrence: None)
  Receive Date: 20060522
  Receipt Date: 20060509
  Transmission Date: 20061013
  Serious: Yes (Hospitalization, Disabling)
  Sender: FDA-Public Use
  Company Number: 2006063490

PATIENT
  Age: 53 Year
  Sex: Female
  Weight: 95.2554 kg

DRUGS (2)
  1. BEXTRA [Suspect]
     Indication: ARTHRITIS
     Dosage: 20 MG (20 MG, 1 IN 1 D),
     Dates: start: 20010401, end: 20050201
  2. BEXTRA [Suspect]
     Indication: INFLAMMATION
     Dosage: 20 MG (20 MG, 1 IN 1 D),
     Dates: start: 20010401, end: 20050201

REACTIONS (9)
  - BLOOD DISORDER [None]
  - CONDITION AGGRAVATED [None]
  - DEPRESSION [None]
  - IMPAIRED WORK ABILITY [None]
  - MUSCLE ATROPHY [None]
  - MYOCARDIAL INFARCTION [None]
  - PHLEBITIS [None]
  - VASCULAR BYPASS GRAFT [None]
  - WEIGHT INCREASED [None]
